FAERS Safety Report 7019312-0 (Version None)
Quarter: 2010Q3

REPORT INFORMATION
  Report Type: 
  Country: None (occurrence: None)
  Receive Date: 20100922
  Receipt Date: 20100913
  Transmission Date: 20110219
  Serious: Yes (Hospitalization)
  Sender: FDA-Public Use
  Company Number: 2010MA002592

PATIENT
  Age: 65 Year
  Sex: Female

DRUGS (1)
  1. TRIAMCINOLONE ACETONIDE [Suspect]
     Indication: DIABETIC RETINAL OEDEMA
     Dosage: 4 MG; 1X;INJ

REACTIONS (3)
  - INJECTION SITE EXTRAVASATION [None]
  - INTRAOCULAR PRESSURE INCREASED [None]
  - STAPHYLOMA [None]
